FAERS Safety Report 19330714 (Version 1)
Quarter: 2021Q2

REPORT INFORMATION
  Report Type: Report from Study
  Country: GR (occurrence: GR)
  Receive Date: 20210528
  Receipt Date: 20210528
  Transmission Date: 20210717
  Serious: Yes (Other)
  Sender: FDA-Public Use
  Company Number: GR-BAUSCH-BL-2021-019012

PATIENT
  Age: 54 Year
  Sex: Female

DRUGS (1)
  1. KYNTHEUM [Suspect]
     Active Substance: BRODALUMAB
     Indication: PSORIASIS
     Dosage: 210MG IN WEEKS 0,1,2, THEN BI?WEEKLY
     Route: 065
     Dates: start: 20201114, end: 20201226

REACTIONS (1)
  - Psoriasis [Recovered/Resolved]
